FAERS Safety Report 10078687 (Version 1)
Quarter: 2014Q2

REPORT INFORMATION
  Report Type: Spontaneous
  Country: FR (occurrence: None)
  Receive Date: 20140411
  Receipt Date: 20140411
  Transmission Date: 20141212
  Serious: Yes (Hospitalization)
  Sender: FDA-Public Use
  Company Number: 2014093609

PATIENT
  Age: 50 Year
  Sex: Male

DRUGS (4)
  1. FRAGMINE [Suspect]
     Route: 058
     Dates: start: 20140205, end: 20140211
  2. LOVENOX [Suspect]
     Route: 058
     Dates: start: 20140127, end: 20140204
  3. DAFALGAN (PARACETAMOL) [Concomitant]
  4. SPECIAFOLDINE (FLOIC ACID) [Concomitant]

REACTIONS (2)
  - Thrombocytosis [None]
  - Platelet count increased [None]
